FAERS Safety Report 16650966 (Version 1)
Quarter: 2019Q3

REPORT INFORMATION
  Report Type: Spontaneous
  Country: US (occurrence: US)
  Receive Date: 20190731
  Receipt Date: 20190731
  Transmission Date: 20191004
  Serious: Yes (Other)
  Sender: FDA-Public Use
  Company Number: US-ALVOGEN-2019-ALVOGEN-100808

PATIENT
  Age: 22 Year

DRUGS (2)
  1. FLUOXETINE [Suspect]
     Active Substance: FLUOXETINE HYDROCHLORIDE
     Indication: DEPRESSION
  2. BUPROPION. [Interacting]
     Active Substance: BUPROPION
     Indication: DEPRESSION

REACTIONS (4)
  - Drug interaction [Unknown]
  - Status epilepticus [Unknown]
  - Overdose [Unknown]
  - Serotonin syndrome [Unknown]
